FAERS Safety Report 14333939 (Version 2)
Quarter: 2018Q1

REPORT INFORMATION
  Report Type: Spontaneous
  Country: IT (occurrence: IT)
  Receive Date: 20171228
  Receipt Date: 20180124
  Transmission Date: 20180509
  Serious: Yes (Hospitalization)
  Sender: FDA-Public Use
  Company Number: IT-PFIZER INC-2017548218

PATIENT
  Age: 61 Year
  Sex: Female

DRUGS (12)
  1. ACITRETIN. [Concomitant]
     Active Substance: ACITRETIN
     Dosage: 25 MG, UNK
     Route: 048
  2. IRBESARTAN. [Concomitant]
     Active Substance: IRBESARTAN
     Dosage: 150 MG, UNK
     Route: 048
  3. EUTIROX [Concomitant]
     Active Substance: LEVOTHYROXINE SODIUM
     Dosage: 1 DF, 50 MG
     Route: 048
  4. ZIRTEC [Concomitant]
     Active Substance: CETIRIZINE HYDROCHLORIDE
     Dosage: 1 DF
     Route: 048
  5. PANTOPRAZOLE SODIUM SESQUIHYDRATE [Concomitant]
     Active Substance: PANTOPRAZOLE SODIUM
     Dosage: 40 MG, UNK
     Route: 048
  6. FUROSEMIDE. [Concomitant]
     Active Substance: FUROSEMIDE
     Dosage: 25 MG, UNK
     Route: 048
  7. TAVOR (LORAZEPAM) [Suspect]
     Active Substance: LORAZEPAM
     Dosage: 25 MG, UNK
     Route: 048
     Dates: start: 20171204, end: 20171204
  8. DUROGESIC [Concomitant]
     Active Substance: FENTANYL
     Dosage: 1 DF, 100 MG/HOUR
     Route: 062
  9. CARDIOASPIRIN [Concomitant]
     Active Substance: ASPIRIN
     Dosage: 1 DF
     Route: 048
  10. LYRICA [Concomitant]
     Active Substance: PREGABALIN
     Dosage: 1 DF
     Route: 048
  11. DULOXETINE HYDROCHLORIDE. [Concomitant]
     Active Substance: DULOXETINE HYDROCHLORIDE
     Dosage: 30 MG, UNK
     Route: 048
  12. ZETIA [Concomitant]
     Active Substance: EZETIMIBE
     Dosage: 1 DF
     Route: 048

REACTIONS (4)
  - Drug abuse [Recovering/Resolving]
  - Acute respiratory failure [Recovering/Resolving]
  - Poisoning deliberate [Recovering/Resolving]
  - Sopor [Recovering/Resolving]

NARRATIVE: CASE EVENT DATE: 20171204
